FAERS Safety Report 7641209-3 (Version None)
Quarter: 2011Q3

REPORT INFORMATION
  Report Type: 
  Country: None (occurrence: None)
  Receive Date: 20110728
  Receipt Date: 20110719
  Transmission Date: 20111222
  Serious: Yes (Disabling, Other)
  Sender: FDA-Public Use
  Company Number: PHFR2011GB00560

PATIENT
  Sex: Female

DRUGS (2)
  1. CLOZAPINE [Suspect]
     Indication: SCHIZOPHRENIA
     Dosage: 350 MG, QD
     Route: 048
     Dates: start: 19930101
  2. LOFEPRAMINE [Concomitant]
     Indication: DEPRESSION
     Dosage: 70 MG, QD
     Dates: start: 20070101

REACTIONS (7)
  - DECREASED APPETITE [None]
  - GASTROINTESTINAL DISORDER [None]
  - WHITE BLOOD CELL COUNT INCREASED [None]
  - LOWER RESPIRATORY TRACT INFECTION [None]
  - PNEUMONIA [None]
  - LUNG CONSOLIDATION [None]
  - NEUTROPHIL COUNT INCREASED [None]
